FAERS Safety Report 7535603-9 (Version None)
Quarter: 2011Q2

REPORT INFORMATION
  Report Type: 
  Country: None (occurrence: None)
  Receive Date: 20110609
  Receipt Date: 20110602
  Transmission Date: 20111010
  Serious: Yes (Hospitalization)
  Sender: FDA-Public Use
  Company Number: US-JNJFOC-20091200782

PATIENT
  Age: 81 Year
  Sex: Male

DRUGS (1)
  1. CALCIUM CARBONATE [Suspect]
     Indication: OSTEOPOROSIS PROPHYLAXIS

REACTIONS (2)
  - MILK-ALKALI SYNDROME [None]
  - RENAL FAILURE ACUTE [None]
